FAERS Safety Report 5030489-9 (Version None)
Quarter: 2006Q2

REPORT INFORMATION
  Report Type: 
  Country: None (occurrence: None)
  Receive Date: 20060615
  Receipt Date: 20060606
  Transmission Date: 20061013
  Serious: Yes (Other)
  Sender: FDA-Public Use
  Company Number: 2006072862

PATIENT
  Sex: Female
  Weight: 77.1115 kg

DRUGS (2)
  1. ROGAINE [Suspect]
     Indication: HYPOTRICHOSIS
     Dosage: 1 ML TWICE A DAY, TOPICAL
     Route: 061
  2. LEVOTHYROXINE SODIUM [Concomitant]

REACTIONS (1)
  - THORACIC VERTEBRAL FRACTURE [None]
